FAERS Safety Report 20010380 (Version 1)
Quarter: 2021Q4

REPORT INFORMATION
  Report Type: Spontaneous
  Country: US (occurrence: US)
  Receive Date: 20211029
  Receipt Date: 20211029
  Transmission Date: 20220303
  Serious: No
  Sender: FDA-Public Use
  Company Number: US-AMGEN-USASP2021165835

PATIENT
  Age: 61 Year
  Sex: Female

DRUGS (1)
  1. EVENITY [Suspect]
     Active Substance: ROMOSOZUMAB-AQQG
     Indication: Osteoporosis postmenopausal
     Dosage: 210 MILLIGRAM, QMO
     Route: 065
     Dates: start: 202103

REACTIONS (8)
  - Feeling abnormal [Unknown]
  - Fatigue [Unknown]
  - Swelling [Unknown]
  - Localised oedema [Unknown]
  - Oedema peripheral [Unknown]
  - Headache [Unknown]
  - Injection site pain [Unknown]
  - Injection site swelling [Unknown]

NARRATIVE: CASE EVENT DATE: 20210101
